FAERS Safety Report 5149956-2 (Version None)
Quarter: 2006Q4

REPORT INFORMATION
  Report Type: 
  Country: None (occurrence: None)
  Receive Date: 20061108
  Receipt Date: 20061026
  Transmission Date: 20070319
  Serious: Yes (Life-Threatening, Hospitalization, Other)
  Sender: FDA-Public Use
  Company Number: 2006130695

PATIENT
  Age: 34 Year
  Sex: Female

DRUGS (4)
  1. NIFEDIPINE [Suspect]
     Indication: SUICIDE ATTEMPT
     Dosage: 250 MG, ORAL
     Route: 048
  2. ALCOHOL (ETHANOL) [Suspect]
     Indication: SUICIDE ATTEMPT
     Dosage: ORAL
     Route: 048
  3. LANOXIN [Concomitant]
  4. NIFEDIPINE [Concomitant]

REACTIONS (11)
  - ACIDOSIS [None]
  - ALCOHOL USE [None]
  - CARDIOACTIVE DRUG LEVEL ABOVE THERAPEUTIC [None]
  - CONDUCTION DISORDER [None]
  - DYSARTHRIA [None]
  - HYPERGLYCAEMIA [None]
  - HYPOTENSION [None]
  - INTENTIONAL OVERDOSE [None]
  - NAUSEA [None]
  - SUICIDE ATTEMPT [None]
  - VOMITING [None]
